FAERS Safety Report 10981935 (Version 1)
Quarter: 2015Q2

REPORT INFORMATION
  Report Type: Report from Study
  Country: BR (occurrence: BR)
  Receive Date: 20150402
  Receipt Date: 20150402
  Transmission Date: 20150821
  Serious: Yes (Death, Other)
  Sender: FDA-Public Use
  Company Number: PHHY2015BR039603

PATIENT
  Sex: Female

DRUGS (5)
  1. COMBIGAN [Suspect]
     Active Substance: BRIMONIDINE TARTRATE\TIMOLOL MALEATE
     Indication: RETINAL ARTERY OCCLUSION
  2. ASPIRIN. [Concomitant]
     Active Substance: ASPIRIN
     Indication: PRODUCT USED FOR UNKNOWN INDICATION
     Dosage: 1 DF, QD, (4 YEARS AGO TO UNTIL DEATH)
     Route: 048
  3. COMBIGAN [Suspect]
     Active Substance: BRIMONIDINE TARTRATE\TIMOLOL MALEATE
     Indication: DEMENTIA ALZHEIMER^S TYPE
     Dosage: 1 DRP, BID ((5 OR 10 ML), EACH 12 HRS)
     Route: 047
     Dates: start: 20150119
  4. CITALOPRAM [Concomitant]
     Active Substance: CITALOPRAM HYDROBROMIDE
     Indication: PROPHYLAXIS
     Dosage: 1 DF, QD, (10 OR 12 YEARS AGO UNTIL DEATH)
  5. EXELON PATCH [Suspect]
     Active Substance: RIVASTIGMINE
     Indication: DEMENTIA ALZHEIMER^S TYPE
     Dosage: UNK
     Route: 065

REACTIONS (6)
  - Condition aggravated [Unknown]
  - Death [Fatal]
  - Memory impairment [Not Recovered/Not Resolved]
  - Dementia Alzheimer^s type [Unknown]
  - Apathy [Not Recovered/Not Resolved]
  - Respiratory rate increased [Unknown]
